FAERS Safety Report 7031294-4 (Version None)
Quarter: 2010Q4

REPORT INFORMATION
  Report Type: 
  Country: None (occurrence: None)
  Receive Date: 20101006
  Receipt Date: 20100929
  Transmission Date: 20110411
  Serious: Yes (Other)
  Sender: FDA-Public Use
  Company Number: B0677418A

PATIENT
  Sex: Female

DRUGS (5)
  1. ZEFIX [Suspect]
     Indication: PRODUCT USED FOR UNKNOWN INDICATION
     Route: 048
  2. PREDONINE [Concomitant]
     Route: 065
  3. METHYCOBAL [Concomitant]
     Route: 065
  4. ADETPHOS [Concomitant]
     Route: 048
  5. MUCOSTA [Concomitant]
     Route: 048

REACTIONS (1)
  - SUDDEN HEARING LOSS [None]
